FAERS Safety Report 4466262-X (Version None)
Quarter: 2004Q4

REPORT INFORMATION
  Report Type: 
  Country: None (occurrence: None)
  Receive Date: 20041005
  Receipt Date: 20040927
  Transmission Date: 20050328
  Serious: Yes (Hospitalization)
  Sender: FDA-Public Use
  Company Number: GB-MERCK-0409GBR00261

PATIENT
  Age: 65 Year
  Sex: Female

DRUGS (3)
  1. ACETAMINOPHEN AND CODEINE PHOSPHATE [Concomitant]
     Route: 048
     Dates: start: 20040601
  2. AMITRIPTYLINE HYDROCHLORIDE [Concomitant]
     Route: 048
     Dates: start: 20040601
  3. VIOXX [Suspect]
     Indication: PAIN
     Route: 048
     Dates: start: 20040601, end: 20040910

REACTIONS (3)
  - ABDOMINAL PAIN [None]
  - HAEMATEMESIS [None]
  - MELAENA [None]
